FAERS Safety Report 6035201-2 (Version None)
Quarter: 2009Q1

REPORT INFORMATION
  Report Type: 
  Country: None (occurrence: None)
  Receive Date: 20090109
  Receipt Date: 20081226
  Transmission Date: 20090719
  Serious: Yes (Life-Threatening)
  Sender: FDA-Public Use
  Company Number: 2008US003450

PATIENT
  Age: 14 Year
  Sex: Male

DRUGS (17)
  1. AMBISOME [Suspect]
     Indication: FUNGAL INFECTION
     Dosage: 200 MG, UID/QD, IV DRIP
     Route: 041
     Dates: start: 20081015, end: 20081128
  2. GLEEVEC [Suspect]
     Indication: ACUTE LYMPHOCYTIC LEUKAEMIA
     Dosage: 450 MG, UID/QD, ORAL
     Route: 048
     Dates: start: 20081030, end: 20081128
  3. CYCLOPHOSPHAMIDE [Concomitant]
  4. DAUNOMYCIN (DAUNORUBICIN HYDROCHLORIDE) [Concomitant]
  5. FLUMARIN (FLOMOXEF SODIUM) [Concomitant]
  6. AZACTAM [Concomitant]
  7. MINOPEN (MINOCYCLINE HYDROCHLORIDE) [Concomitant]
  8. VICCILLIN [Concomitant]
  9. MEROPEN (MEROPENEM TRIHYDRATE) [Concomitant]
  10. NEUPOGEN [Concomitant]
  11. FUNGUARD (MICAFUNGIN) INJECTION [Concomitant]
  12. TIENAM (IMIPENEM, CILASTATIN SODIUM) [Concomitant]
  13. HABEKACIN (ARBEKACIN SULFATE) [Concomitant]
  14. GLYCEREB (FRUCTOSE, GLYCEROL) [Concomitant]
  15. IMMUNE GLOBULIN INTRAVENOUS (HUMAN) [Concomitant]
  16. SOLU-MEDROL [Concomitant]
  17. RED BLOOD CELLS [Concomitant]

REACTIONS (14)
  - ABDOMINAL DISTENSION [None]
  - ABDOMINAL PAIN [None]
  - CARBON DIOXIDE INCREASED [None]
  - DISSEMINATED INTRAVASCULAR COAGULATION [None]
  - GENERAL PHYSICAL HEALTH DETERIORATION [None]
  - HEART RATE DECREASED [None]
  - HYPERGLYCAEMIA [None]
  - HYPOKALAEMIA [None]
  - NAUSEA [None]
  - PANCREATITIS ACUTE [None]
  - PYREXIA [None]
  - RESPIRATORY ARREST [None]
  - RESPIRATORY FAILURE [None]
  - SHOCK [None]
